FAERS Safety Report 21899044 (Version 1)
Quarter: 2023Q1

REPORT INFORMATION
  Report Type: Spontaneous
  Country: GB (occurrence: GB)
  Receive Date: 20230123
  Receipt Date: 20230123
  Transmission Date: 20230418
  Serious: No
  Sender: FDA-Public Use
  Company Number: GB-BAXTER-2022BAX025770

PATIENT
  Sex: Female

DRUGS (4)
  1. WATER FOR INJECTION [Suspect]
     Active Substance: WATER
     Indication: Medication dilution
     Dosage: UNK
     Route: 065
  2. SODIUM CHLORIDE [Suspect]
     Active Substance: SODIUM CHLORIDE
     Indication: Medication dilution
     Dosage: UNK
     Route: 065
  3. INFLIXIMAB [Suspect]
     Active Substance: INFLIXIMAB
     Dosage: 265 MILLIGRAMS (MG), FREQUENCY NOT REPORTED
     Route: 065
  4. INFLIXIMAB [Suspect]
     Active Substance: INFLIXIMAB
     Dosage: 265 MILLIGRAMS (MG), FREQUENCY NOT REPORTED
     Route: 065

REACTIONS (7)
  - Fatigue [Not Recovered/Not Resolved]
  - Dry skin [Not Recovered/Not Resolved]
  - Arthralgia [Recovering/Resolving]
  - Treatment delayed [Unknown]
  - Product prescribing issue [Unknown]
  - Product preparation error [Unknown]
  - Hypotension [Not Recovered/Not Resolved]
